FAERS Safety Report 13965316 (Version 1)
Quarter: 2017Q3

REPORT INFORMATION
  Report Type: Spontaneous
  Country: US (occurrence: US)
  Receive Date: 20170913
  Receipt Date: 20170913
  Transmission Date: 20171128
  Serious: No
  Sender: FDA-Public Use
  Company Number: US-VIVUS, INC.-2016V1000345

PATIENT
  Age: 47 Year
  Sex: Female

DRUGS (5)
  1. QSYMIA [Suspect]
     Active Substance: PHENTERMINE HYDROCHLORIDE\TOPIRAMATE
     Indication: WEIGHT DECREASED
     Route: 048
     Dates: start: 20160916, end: 20161006
  2. LEXAPRO [Concomitant]
     Active Substance: ESCITALOPRAM OXALATE
     Indication: DEPRESSION
     Route: 048
  3. QSYMIA [Suspect]
     Active Substance: PHENTERMINE HYDROCHLORIDE\TOPIRAMATE
     Indication: WEIGHT DECREASED
     Route: 048
     Dates: start: 20161007, end: 20161014
  4. DEPO INJECTION [Concomitant]
     Indication: CONTRACEPTION
     Route: 058
  5. RETIN-A [Concomitant]
     Active Substance: TRETINOIN
     Indication: ACNE

REACTIONS (2)
  - Disorientation [Unknown]
  - Dissociation [Unknown]

NARRATIVE: CASE EVENT DATE: 20161013
